FAERS Safety Report 8282585-0 (Version None)
Quarter: 2012Q2

REPORT INFORMATION
  Report Type: 
  Country: None (occurrence: None)
  Receive Date: 20120411
  Receipt Date: 20120402
  Transmission Date: 20120825
  Serious: Yes (Disabling, Other)
  Sender: FDA-Public Use
  Company Number: ACO_29920_2012

PATIENT
  Age: 75 Year
  Sex: Female
  Weight: 78.5 kg

DRUGS (3)
  1. ARIMIDEX [Concomitant]
  2. AMPYRA [Suspect]
     Indication: GAIT DISTURBANCE
     Dosage: 10 MG, BID, ORAL
     Route: 048
     Dates: start: 20111001
  3. TYLENOL (CAPLET) [Concomitant]

REACTIONS (2)
  - ABASIA [None]
  - ASTHENIA [None]
